FAERS Safety Report 5605581-8 (Version None)
Quarter: 2008Q1

REPORT INFORMATION
  Report Type: 
  Country: None (occurrence: None)
  Receive Date: 20080124
  Receipt Date: 20071205
  Transmission Date: 20080703
  Serious: Yes (Hospitalization)
  Sender: FDA-Public Use
  Company Number: 380001J07GBR

PATIENT
  Age: 57 Year
  Sex: Female
  Weight: 70 kg

DRUGS (5)
  1. CRINONE [Suspect]
     Indication: HORMONE REPLACEMENT THERAPY
     Dates: start: 20051025
  2. PREMARIN [Suspect]
     Indication: HORMONE REPLACEMENT THERAPY
     Dosage: 625 MG, 1 IN 1 DAYS, ORAL
     Route: 048
     Dates: start: 20060214
  3. FEXOFENADINE HCL [Concomitant]
  4. AMITRIPTYLINE HCL [Concomitant]
  5. ACETAMINOPHEN [Concomitant]

REACTIONS (5)
  - BODY TEMPERATURE INCREASED [None]
  - COLD SWEAT [None]
  - HEART RATE INCREASED [None]
  - NEOPLASM [None]
  - PYREXIA [None]
